FAERS Safety Report 16977827 (Version 2)
Quarter: 2019Q4

REPORT INFORMATION
  Report Type: Spontaneous
  Country: US (occurrence: US)
  Receive Date: 20191031
  Receipt Date: 20191105
  Transmission Date: 20200122
  Serious: No
  Sender: FDA-Public Use
  Company Number: US-LUNDBECK-DKLU3005844

PATIENT
  Age: 81 Year
  Sex: Male
  Weight: 89 kg

DRUGS (3)
  1. NORTHERA [Suspect]
     Active Substance: DROXIDOPA
     Indication: ORTHOSTATIC HYPOTENSION
  2. NORTHERA [Suspect]
     Active Substance: DROXIDOPA
     Indication: AUTONOMIC NEUROPATHY
     Route: 048
     Dates: start: 20190914, end: 20190919
  3. FLORINEF ACETATE [Concomitant]
     Active Substance: FLUDROCORTISONE ACETATE
     Indication: ORTHOSTATIC HYPOTENSION
     Route: 065
     Dates: start: 20190621

REACTIONS (1)
  - Restlessness [Recovered/Resolved]

NARRATIVE: CASE EVENT DATE: 20190914
